FAERS Safety Report 5329153-8 (Version None)
Quarter: 2007Q2

REPORT INFORMATION
  Report Type: 
  Country: None (occurrence: None)
  Receive Date: 20070220
  Receipt Date: 20061221
  Transmission Date: 20071010
  Serious: No
  Sender: FDA-Public Use
  Company Number: WAES 0612USA03519

PATIENT
  Age: 53 Year
  Sex: Male
  Weight: 97.977 kg

DRUGS (1)
  1. JANUVIA [Suspect]
     Indication: BLOOD GLUCOSE
     Dosage: 100MG, DAILY, PO
     Route: 048
     Dates: start: 20061206, end: 20061218

REACTIONS (1)
  - VOMITING [None]
